FAERS Safety Report 4277887-9 (Version None)
Quarter: 2004Q1

REPORT INFORMATION
  Report Type: 
  Country: None (occurrence: None)
  Receive Date: 20040122
  Receipt Date: 20040122
  Transmission Date: 20041129
  Serious: Yes (Life-Threatening)
  Sender: FDA-Public Use
  Company Number: None

PATIENT
  Age: 67 Year
  Sex: Male
  Weight: 80 kg

DRUGS (1)
  1. INTEGRILIN [Suspect]
     Indication: ACUTE MYOCARDIAL INFARCTION
     Dosage: 7.5ML  ONCE  INTRAVENOUS
     Route: 042
     Dates: start: 20031208, end: 20031208

REACTIONS (3)
  - CONVULSION [None]
  - EYE IRRITATION [None]
  - RESPIRATORY ARREST [None]
